FAERS Safety Report 8680069 (Version 2)
Quarter: 2012Q4

REPORT INFORMATION
  Report Type: 
  Country: FR (occurrence: FR)
  Receive Date: 20120724
  Receipt Date: 20121005
  Transmission Date: 20130627
  Serious: Yes (Life-Threatening)
  Sender: FDA-Public Use
  Company Number: FR-WATSON-2012-11973

PATIENT
  Sex: Female

DRUGS (10)
  1. SPIRONOLACTONE [Suspect]
     Indication: PRODUCT USED FOR UNKNOWN INDICATION
     Dosage: 50 mg, daily
     Route: 048
     Dates: end: 20120618
  2. VANCOMYCIN [Suspect]
     Indication: DEVICE RELATED INFECTION
     Dosage: 1 g, tid
     Route: 042
     Dates: start: 20120518, end: 20120618
  3. GENTAMICIN [Suspect]
     Indication: DEVICE RELATED INFECTION
     Dosage: 320 mg, daily
     Route: 048
     Dates: start: 20120518, end: 20120618
  4. LOSARTAN POTASSIUM (UNKNOWN) [Suspect]
     Indication: HYPERTENSION
     Dosage: 100 mg, daily
     Route: 048
     Dates: end: 20120618
  5. KETOPROFEN [Suspect]
     Indication: PRODUCT USED FOR UNKNOWN INDICATION
     Dosage: 1 DF, bid
     Route: 048
     Dates: end: 20120618
  6. LASILIX                            /00032601/ [Suspect]
     Indication: PRODUCT USED FOR UNKNOWN INDICATION
     Dosage: 40 mg, daily
     Route: 048
  7. CEFTRIAXONE AGUETTANT [Concomitant]
     Indication: DEVICE RELATED INFECTION
     Dosage: UNK
     Route: 042
  8. EUPRESSYL                          /00631801/ [Concomitant]
     Indication: HYPERTENSION
     Dosage: 30 mg, daily
     Route: 048
  9. TOPALGIC LP [Concomitant]
     Indication: PRODUCT USED FOR UNKNOWN INDICATION
     Dosage: 100 mg, bid
     Route: 048
     Dates: end: 20020318
  10. XELEVIA [Concomitant]
     Indication: TYPE 2 DIABETES MELLITUS
     Dosage: 100 mg, daily
     Route: 048
     Dates: end: 20120618

REACTIONS (10)
  - Renal failure acute [Not Recovered/Not Resolved]
  - Blood pressure increased [None]
  - Incision site complication [None]
  - Renal tubular necrosis [None]
  - Haemodialysis [None]
  - Drug interaction [None]
  - Iatrogenic injury [None]
  - Serratia sepsis [None]
  - Device related sepsis [None]
  - Femur fracture [None]
